FAERS Safety Report 6256322-5 (Version None)
Quarter: 2009Q2

REPORT INFORMATION
  Report Type: 
  Country: None (occurrence: None)
  Receive Date: 20090630
  Receipt Date: 20090630
  Transmission Date: 20091009
  Serious: Yes (Other)
  Sender: FDA-Public Use
  Company Number: None

PATIENT
  Sex: Male
  Weight: 74.8435 kg

DRUGS (3)
  1. DORZOLAMIDE HCL AND TIMOLOL MALEATE [Suspect]
     Indication: OPEN ANGLE GLAUCOMA
     Dosage: ONE DROP EVERY TWELVE HOURS OPHTHALMIC
     Route: 047
     Dates: start: 20090619, end: 20090629
  2. XALATAN [Suspect]
     Route: 047
  3. TIMOLOL MALEATE [Suspect]
     Route: 047

REACTIONS (2)
  - APPLICATION SITE REACTION [None]
  - PUNCTATE KERATITIS [None]
